FAERS Safety Report 4563514-X (Version None)
Quarter: 2005Q1

REPORT INFORMATION
  Report Type: 
  Country: None (occurrence: None)
  Receive Date: 20050128
  Receipt Date: 20040730
  Transmission Date: 20050727
  Serious: No
  Sender: FDA-Public Use
  Company Number: US-GLAXOSMITHKLINE-A0520365A

PATIENT
  Age: 72 Year
  Sex: Female

DRUGS (4)
  1. WELLBUTRIN [Suspect]
     Indication: DEPRESSION
     Dosage: 300MG UNKNOWN
     Route: 048
  2. NEXIUM [Concomitant]
  3. AMBIEN [Concomitant]
  4. PROVIGIL [Concomitant]

REACTIONS (2)
  - AGITATION [None]
  - ANXIETY [None]
